FAERS Safety Report 4954730-3 (Version None)
Quarter: 2006Q1

REPORT INFORMATION
  Report Type: 
  Country: None (occurrence: None)
  Receive Date: 20060322
  Receipt Date: 20060309
  Transmission Date: 20060701
  Serious: Yes (Other)
  Sender: FDA-Public Use
  Company Number: 2005085501

PATIENT
  Age: 35 Year
  Sex: Female

DRUGS (2)
  1. HEPARIN SODIUM [Suspect]
     Indication: ILL-DEFINED DISORDER
  2. GABEXATE [Concomitant]

REACTIONS (5)
  - ANAESTHETIC COMPLICATION [None]
  - DRUG EXPOSURE DURING PREGNANCY [None]
  - DYSURIA [None]
  - EXTRADURAL HAEMATOMA [None]
  - OBSTETRIC PROCEDURE COMPLICATION [None]
